FAERS Safety Report 9158839 (Version 5)
Quarter: 2014Q2

REPORT INFORMATION
  Report Type: Spontaneous
  Country: DE (occurrence: DE)
  Receive Date: 20130313
  Receipt Date: 20140603
  Transmission Date: 20141212
  Serious: Yes (Death, Hospitalization, Disabling)
  Sender: FDA-Public Use
  Company Number: DE-AMGEN-DEUSP2013015730

PATIENT
  Sex: Male

DRUGS (17)
  1. PEGFILGRASTIM [Suspect]
     Indication: DIFFUSE LARGE B-CELL LYMPHOMA
     Dosage: 6 MG, 4X FOR 44 DAYS
     Route: 058
     Dates: start: 20121129, end: 20130115
  2. RITUXIMAB [Suspect]
     Indication: DIFFUSE LARGE B-CELL LYMPHOMA
     Dosage: 675 MG, DAILY, 7X FOR 53 DAYS
     Route: 042
     Dates: start: 20121120, end: 20130111
  3. CYCLOPHOSPHAMIDE [Suspect]
     Indication: DIFFUSE LARGE B-CELL LYMPHOMA
     Dosage: 1350 MG, 4X FOR 48 DAYS
     Route: 042
     Dates: start: 20121126, end: 20130112
  4. DOXORUBICIN [Suspect]
     Indication: DIFFUSE LARGE B-CELL LYMPHOMA
     Dosage: 90 MG, 4X FOR 48 DAYS
     Route: 042
     Dates: start: 20121126, end: 20130112
  5. VINCRISTINE [Suspect]
     Indication: DIFFUSE LARGE B-CELL LYMPHOMA
     Dosage: 3.58 MG, 4X FOR 47 DAYS
     Route: 042
     Dates: start: 20121127, end: 20130112
  6. PREDNISONE [Suspect]
     Indication: DIFFUSE LARGE B-CELL LYMPHOMA
     Dosage: 100 MG, 37 X FOR 58 DAYS
     Route: 048
     Dates: start: 20121115, end: 20130116
  7. PREDNISONE [Suspect]
     Dosage: 2 X 25MG
     Route: 065
  8. DIPYRONE [Concomitant]
     Dosage: 1500 MG/D
  9. VORICONAZOLE [Concomitant]
     Indication: PNEUMONIA FUNGAL
     Dosage: 200 MG, BID
     Route: 048
     Dates: start: 20130130
  10. DIGITOXIN [Concomitant]
     Indication: ATRIAL FIBRILLATION
     Dosage: 0.07 MG, 1 IN 1 D
     Route: 048
     Dates: start: 20130204, end: 20140318
  11. ACICLOVIR [Concomitant]
     Indication: PROPHYLAXIS
     Dosage: 400 MG, 4 IN 1 D
     Route: 048
     Dates: start: 20121120, end: 20130318
  12. TRIMETHOPRIM SULFA [Concomitant]
     Indication: PROPHYLAXIS
     Dosage: 960 MG, 1-0-1
     Route: 048
     Dates: start: 20121120, end: 20130318
  13. PANTOPRAZOLE [Concomitant]
     Dosage: 40 MG/D
  14. BALDRIAN                           /01561601/ [Concomitant]
     Dosage: UNK
  15. SODIUM CHLORIDE [Concomitant]
     Dosage: UNK
  16. MCP                                /00041902/ [Concomitant]
     Dosage: UNK
  17. CERTOPARIN SODIUM [Concomitant]
     Dosage: 3000 IE/D
     Route: 058

REACTIONS (3)
  - Hyponatraemia [Fatal]
  - Paresis cranial nerve [Recovered/Resolved with Sequelae]
  - Facial paresis [Recovered/Resolved with Sequelae]
